FAERS Safety Report 6179873-0 (Version None)
Quarter: 2009Q2

REPORT INFORMATION
  Report Type: 
  Country: None (occurrence: None)
  Receive Date: 20090501
  Receipt Date: 20090417
  Transmission Date: 20091009
  Serious: Yes (Death, Hospitalization)
  Sender: FDA-Public Use
  Company Number: 2009AL000153

PATIENT
  Age: 33 Year
  Sex: Female
  Weight: 34.0198 kg

DRUGS (8)
  1. DIGOXIN [Suspect]
     Dosage: 0.125MG, DAILY, PO
     Route: 048
     Dates: start: 20061001, end: 20070113
  2. ATENOLOL [Concomitant]
  3. LAMICTAL [Concomitant]
  4. PREVACID [Concomitant]
  5. SULFA [Concomitant]
  6. DEPAKOTE [Concomitant]
  7. RISPERDAL [Concomitant]
  8. THYROID TAB [Concomitant]

REACTIONS (11)
  - ABNORMAL BEHAVIOUR [None]
  - ANAEMIA [None]
  - ARRHYTHMIA [None]
  - ATRIOVENTRICULAR BLOCK FIRST DEGREE [None]
  - CARDIO-RESPIRATORY ARREST [None]
  - ENCEPHALOPATHY [None]
  - GAIT DISTURBANCE [None]
  - HEART RATE INCREASED [None]
  - RENAL FAILURE [None]
  - SEPSIS [None]
  - TREATMENT NONCOMPLIANCE [None]
